FAERS Safety Report 25319855 (Version 1)
Quarter: 2025Q2

REPORT INFORMATION
  Report Type: Spontaneous
  Country: US (occurrence: US)
  Receive Date: 20250515
  Receipt Date: 20250515
  Transmission Date: 20250716
  Serious: Yes (Hospitalization)
  Sender: NEUROCRINE BIOSCIENCES
  Company Number: US-NEUROCRINE BIOSCIENCES INC.-2025NBI05898

PATIENT
  Age: 58 Year
  Sex: Female

DRUGS (8)
  1. INGREZZA [Suspect]
     Active Substance: VALBENAZINE DITOSYLATE
     Indication: Tardive dyskinesia
     Route: 065
     Dates: start: 20250428
  2. METOPROLOL [Concomitant]
     Active Substance: METOPROLOL
  3. TOPAMAX [Concomitant]
     Active Substance: TOPIRAMATE
  4. FLUVOXAMINE [Concomitant]
     Active Substance: FLUVOXAMINE
  5. VRAYLAR [Concomitant]
     Active Substance: CARIPRAZINE
  6. TRAZODONE [Concomitant]
     Active Substance: TRAZODONE HYDROCHLORIDE
  7. GABAPENTIN [Concomitant]
     Active Substance: GABAPENTIN
  8. MELATONIN [Concomitant]
     Active Substance: MELATONIN

REACTIONS (7)
  - Heart rate increased [Unknown]
  - Blood pressure increased [Unknown]
  - Troponin increased [Unknown]
  - Tremor [Unknown]
  - Dyskinesia [Unknown]
  - Feeling hot [Unknown]
  - Hyperhidrosis [Unknown]

NARRATIVE: CASE EVENT DATE: 20250430
